FAERS Safety Report 14763048 (Version 1)
Quarter: 2018Q2

REPORT INFORMATION
  Report Type: Spontaneous
  Country: GB (occurrence: GB)
  Receive Date: 20180416
  Receipt Date: 20180416
  Transmission Date: 20180711
  Serious: Yes (Other)
  Sender: FDA-Public Use
  Company Number: GB-PFIZER INC-2018151725

PATIENT
  Age: 74 Year
  Sex: Female

DRUGS (3)
  1. CLARITHROMYCIN. [Concomitant]
     Active Substance: CLARITHROMYCIN
     Indication: PNEUMONIA
     Dosage: 500 MG, 2X/DAY
  2. ETHAMBUTOL [Concomitant]
     Active Substance: ETHAMBUTOL HYDROCHLORIDE
     Indication: PNEUMONIA
     Dosage: 25 MG/KG, UNK
  3. RIFABUTIN. [Suspect]
     Active Substance: RIFABUTIN
     Indication: PNEUMONIA
     Dosage: 300 MG, 1X/DAY

REACTIONS (3)
  - Vitritis [Recovered/Resolved]
  - Uveitis [Recovered/Resolved]
  - Visual impairment [Recovering/Resolving]
